FAERS Safety Report 8273505-3 (Version None)
Quarter: 2012Q2

REPORT INFORMATION
  Report Type: 
  Country: None (occurrence: None)
  Receive Date: 20120409
  Receipt Date: 20120409
  Transmission Date: 20120825
  Serious: Yes (Other)
  Sender: FDA-Public Use
  Company Number: None

PATIENT
  Age: 55 Year
  Sex: Female

DRUGS (1)
  1. FORTEO [Suspect]
     Dosage: 20MCG ONCE DAILY SUBCUTANEOUSLY
     Route: 058
     Dates: start: 20120211, end: 20120404

REACTIONS (2)
  - MYALGIA [None]
  - BONE PAIN [None]
